FAERS Safety Report 7999623-2 (Version None)
Quarter: 2011Q4

REPORT INFORMATION
  Report Type: 
  Country: None (occurrence: None)
  Receive Date: 20111221
  Receipt Date: 20111212
  Transmission Date: 20120403
  Serious: Yes (Hospitalization)
  Sender: FDA-Public Use
  Company Number: BR-ASTRAZENECA-2010SE39002

PATIENT
  Age: 39 Year
  Sex: Female
  Weight: 77 kg

DRUGS (2)
  1. BUDESONIDE [Suspect]
     Indication: RHINITIS
     Route: 045
  2. FLUTICASONE PROPIONATE/SALMETEROL [Concomitant]
     Indication: BRONCHITIS
     Route: 055
     Dates: start: 20080101

REACTIONS (4)
  - BRONCHITIS [None]
  - DYSPNOEA [None]
  - DRUG INEFFECTIVE [None]
  - RHINITIS [None]
